FAERS Safety Report 10353576 (Version 1)
Quarter: 2014Q3

REPORT INFORMATION
  Report Type: Spontaneous
  Country: US (occurrence: US)
  Receive Date: 20140731
  Receipt Date: 20140731
  Transmission Date: 20150326
  Serious: No
  Sender: FDA-Public Use
  Company Number: US-ASTRAZENECA-2014SE55189

PATIENT
  Age: 763 Month
  Sex: Female
  Weight: 81.6 kg

DRUGS (2)
  1. UNSPECIFIED MEDICATIONS FOR HIGH BLOOD PRESSURE [Concomitant]
  2. NEXIUM 24HR [Suspect]
     Active Substance: ESOMEPRAZOLE MAGNESIUM
     Route: 048
     Dates: start: 201407, end: 20140724

REACTIONS (4)
  - Nervousness [Unknown]
  - Abdominal discomfort [Unknown]
  - Malaise [Unknown]
  - Abdominal pain upper [Unknown]

NARRATIVE: CASE EVENT DATE: 201407
